FAERS Safety Report 7669333-X (Version None)
Quarter: 2011Q3

REPORT INFORMATION
  Report Type: 
  Country: None (occurrence: None)
  Receive Date: 20110808
  Receipt Date: 20110804
  Transmission Date: 20111222
  Serious: Yes (Death, Other)
  Sender: FDA-Public Use
  Company Number: PHEH2010US02407

PATIENT
  Sex: Female

DRUGS (6)
  1. FASLODEX [Concomitant]
  2. LOVASTATIN [Concomitant]
  3. BISACODYL [Concomitant]
  4. RADIATION THERAPY [Concomitant]
  5. ZOMETA [Suspect]
  6. PLAVIX [Concomitant]

REACTIONS (13)
  - FATIGUE [None]
  - GENERAL PHYSICAL HEALTH DETERIORATION [None]
  - DECREASED INTEREST [None]
  - ARTERIOSCLEROSIS CORONARY ARTERY [None]
  - MYOCARDIAL INFARCTION [None]
  - METASTASES TO BONE [None]
  - OSTEONECROSIS OF JAW [None]
  - PAIN [None]
  - CORONARY ARTERY DISEASE [None]
  - ANXIETY [None]
  - DEATH [None]
  - HYPERTENSION [None]
  - PLEURAL EFFUSION [None]
